FAERS Safety Report 7677620-4 (Version None)
Quarter: 2011Q3

REPORT INFORMATION
  Report Type: 
  Country: None (occurrence: None)
  Receive Date: 20110811
  Receipt Date: 20110728
  Transmission Date: 20111222
  Serious: Yes (Hospitalization)
  Sender: FDA-Public Use
  Company Number: CA-ROCHE-781024

PATIENT
  Sex: Female
  Weight: 108 kg

DRUGS (6)
  1. CARBOPLATIN [Suspect]
     Dosage: DOSAGE FORM VIALS, DOSE LEVEL 5 AUC, TOTAL DOSE: 1070 MG, DATE OF LAST DOSE PRIOR TO SAE:09 SEP 2010
     Route: 042
     Dates: start: 20100527, end: 20100909
  2. BEVACIZUMAB [Suspect]
     Dosage: DOASE FORM: VIALS,LAST DOSE GIVEN ON 04 FEB 2011 (TOTAL DOSE ADMINISTRED 1490 MG)
     Route: 042
     Dates: start: 20100527, end: 20110204
  3. TRASTUZUMAB [Suspect]
     Dosage: DOSE : 595 MG. LAST DOSE PRIOR SAE 08 APR 2011.TEMPORARILY INTERRUPTED.
     Route: 042
     Dates: start: 20100927, end: 20110429
  4. DOCETAXEL [Suspect]
     Dosage: TOTAL DOSE:  128 MG. LAST DOSE PRIOR TO SAE 09 SEP 2010.FORM : VIALS
     Route: 042
     Dates: start: 20100527, end: 20100909
  5. ADENOSINE [Suspect]
     Dosage: DRUG USED FOR CARDIAC MRI
     Route: 065
     Dates: start: 20110525, end: 20110525
  6. TRASTUZUMAB [Suspect]
     Dosage: LOADING DOSE 8 MG/KG FOLLOWED BY MAINTAINENCE DOSE 6 MG/KG,TOTAL DOSE: 595MG (6MG/KG), FORM: VIALS.
     Route: 042
     Dates: start: 20100527

REACTIONS (3)
  - LEFT VENTRICULAR DYSFUNCTION [None]
  - BENIGN INTRACRANIAL HYPERTENSION [None]
  - FACIAL PAIN [None]
